FAERS Safety Report 6700752-1 (Version None)
Quarter: 2010Q2

REPORT INFORMATION
  Report Type: 
  Country: None (occurrence: None)
  Receive Date: 20100428
  Receipt Date: 20100419
  Transmission Date: 20101027
  Serious: Yes (Hospitalization)
  Sender: FDA-Public Use
  Company Number: US-BRISTOL-MYERS SQUIBB COMPANY-15067317

PATIENT
  Age: 57 Year
  Sex: Male
  Weight: 64 kg

DRUGS (20)
  1. CETUXIMAB [Suspect]
     Indication: NON-SMALL CELL LUNG CANCER
     Dosage: DOSAGE:712MG,1 IN 3 WEEK. INTERRUPTED ON 30MAR2010
     Route: 042
     Dates: start: 20100330
  2. PACLITAXEL [Suspect]
     Indication: NON-SMALL CELL LUNG CANCER
     Dosage: DOSAGE:356 MG, 1 IN 3 WEEK.
     Route: 042
     Dates: start: 20100330, end: 20100330
  3. CARBOPLATIN [Suspect]
     Indication: NON-SMALL CELL LUNG CANCER
     Dosage: DOSAGE:918 MG 1 IN 3 WEEK.
     Route: 042
     Dates: start: 20100330, end: 20100330
  4. ELAVIL [Concomitant]
     Route: 065
  5. BACLOFEN [Concomitant]
     Route: 048
  6. NEURONTIN [Concomitant]
     Route: 048
     Dates: start: 20090101
  7. HYDRALAZINE HCL [Concomitant]
     Route: 048
     Dates: start: 20090101
  8. HYDROCHLOROTHIAZIDE [Concomitant]
     Route: 048
     Dates: start: 20090101
  9. FOLIC ACID [Concomitant]
     Dates: start: 20100309
  10. PERCOCET [Concomitant]
     Indication: PAIN
     Route: 048
     Dates: start: 20090101, end: 20100310
  11. PROMETHAZINE [Concomitant]
     Route: 065
  12. ASPIRIN [Concomitant]
     Route: 048
     Dates: start: 20090101
  13. ZANAFLEX [Concomitant]
     Route: 048
     Dates: start: 20090101
  14. CYANOCOBALAMIN [Concomitant]
     Route: 048
     Dates: start: 20100309
  15. DIPHENHYDRAMINE [Concomitant]
     Route: 048
     Dates: start: 20100330
  16. MORPHINE SULFATE [Concomitant]
     Indication: PAIN
     Route: 048
     Dates: start: 20100205
  17. MORPHINE SULFATE [Concomitant]
     Indication: PAIN
     Route: 048
     Dates: start: 20100219
  18. ZOFRAN [Concomitant]
     Dosage: ALSO TAKEN ON 22MAR10
     Route: 048
     Dates: start: 20100330
  19. MIRALAX [Concomitant]
     Route: 048
     Dates: start: 20090101
  20. PHENERGAN [Concomitant]
     Route: 048
     Dates: start: 20090101

REACTIONS (6)
  - BLOOD PRESSURE SYSTOLIC INCREASED [None]
  - HAEMATOCRIT DECREASED [None]
  - HYPOKALAEMIA [None]
  - ILEUS [None]
  - SMALL INTESTINAL OBSTRUCTION [None]
  - WHITE BLOOD CELL COUNT DECREASED [None]
